FAERS Safety Report 9563271 (Version 15)
Quarter: 2022Q1

REPORT INFORMATION
  Report Type: Spontaneous
  Country: CA (occurrence: CA)
  Receive Date: 20130927
  Receipt Date: 20220128
  Transmission Date: 20220424
  Serious: Yes (Life-Threatening, Hospitalization, Disabling, Other)
  Sender: FDA-Public Use
  Company Number: CA-MERCK-1309CAN011160

PATIENT
  Age: 56 Year
  Sex: Female
  Weight: 69 kg

DRUGS (40)
  1. JANUVIA [Suspect]
     Active Substance: SITAGLIPTIN PHOSPHATE
     Indication: Product used for unknown indication
     Dosage: 100 MILLIGRAM 1 EVERY 1 DAY
     Route: 048
  2. JANUVIA [Suspect]
     Active Substance: SITAGLIPTIN PHOSPHATE
     Dosage: 1 DOSAGE FORM 1 EVERY 1 DAY
     Route: 048
  3. ASPIRIN [Suspect]
     Active Substance: ASPIRIN
     Indication: Product used for unknown indication
     Dosage: 80 MILLIGRAM 1 EVERY 1 DAY
     Route: 048
  4. ASPIRIN [Suspect]
     Active Substance: ASPIRIN
     Dosage: 1 DOSAGE FORM, 1 EVERY 1 DAY
     Route: 048
  5. LIPITOR [Suspect]
     Active Substance: ATORVASTATIN CALCIUM
     Indication: Product used for unknown indication
     Dosage: 20 MILLIGRAM  1 EVERY 1 DAY
     Route: 048
  6. LIPITOR [Suspect]
     Active Substance: ATORVASTATIN CALCIUM
     Dosage: 1 DOSAGE FORM 1 EVERY 1 DAY (QD)
  7. RASILEZ [Suspect]
     Active Substance: ALISKIREN
     Indication: Hypertension
     Dosage: 150 MILLIGRAM, 1 EVERY 1 DAY (QD)
     Route: 048
     Dates: start: 20111205, end: 20120202
  8. RASILEZ [Suspect]
     Active Substance: ALISKIREN
     Indication: Microalbuminuria
     Dosage: UNK
     Route: 065
  9. RASILEZ [Suspect]
     Active Substance: ALISKIREN
     Indication: Psoriasis
     Dosage: UNK
     Route: 065
  10. RASILEZ [Suspect]
     Active Substance: ALISKIREN
     Dosage: UNK
  11. IRBESARTAN [Suspect]
     Active Substance: IRBESARTAN
     Indication: Hypertension
     Dosage: 300 MILLIGRAM 1 EVERY 1 DAY (QD)
     Route: 048
     Dates: start: 201101
  12. IRBESARTAN [Suspect]
     Active Substance: IRBESARTAN
     Dosage: 300 MG, 1 X/DAY
     Route: 048
  13. IRBESARTAN [Suspect]
     Active Substance: IRBESARTAN
     Indication: Hypertension
     Dosage: 150 MILLIGRAM, 1 EVERY 1 DAY (QD)
     Route: 048
  14. METFORMIN HYDROCHLORIDE [Suspect]
     Active Substance: METFORMIN HYDROCHLORIDE
     Indication: Hypertension
     Dosage: 3 DOSAGE FORM, QD
     Route: 048
  15. METFORMIN HYDROCHLORIDE [Suspect]
     Active Substance: METFORMIN HYDROCHLORIDE
     Dosage: 850 MILLIGRAM, 3 EVERY 1 DAYS (TID)
     Route: 048
  16. IRBESARTAN [Suspect]
     Active Substance: IRBESARTAN
     Indication: Hypertension
     Dosage: 300 MILLIGRAM 1 EVERY 1 DAYS (QD)
     Route: 048
  17. IRBESARTAN [Suspect]
     Active Substance: IRBESARTAN
     Dosage: 1 DOSAGE FORMS, 1 EVERY 1 DAY (QD)
     Route: 048
  18. IRBESARTAN [Suspect]
     Active Substance: IRBESARTAN
     Dosage: 150 MG 1 EVERY 1 DAY (QD)
     Route: 048
  19. AMLODIPINE [Suspect]
     Active Substance: AMLODIPINE BESYLATE
     Indication: Product used for unknown indication
     Dosage: 5 MILLIGRAM, 1 EVERY 1 DAYS (QD)
     Route: 048
  20. AMLODIPINE [Suspect]
     Active Substance: AMLODIPINE BESYLATE
     Dosage: 1 DOSAGE FORM, 1 EVERY 1 DAY (QD)
     Route: 048
  21. AMLODIPINE [Suspect]
     Active Substance: AMLODIPINE BESYLATE
     Dosage: 50 MILLIGRAM, 1 EVERY 1 DAYS (QD)
     Route: 048
  22. ALISKIREN [Suspect]
     Active Substance: ALISKIREN
     Indication: Hypertension
     Dosage: 150 MILLIGRAM, 1 EVERY 1 DAY (QD)
     Route: 048
  23. ALISKIREN [Suspect]
     Active Substance: ALISKIREN
     Indication: Microalbuminuria
     Dosage: 1 DOSAGE FORM, 1 EVERY 1 DAY (QD)
     Route: 048
  24. ALISKIREN [Suspect]
     Active Substance: ALISKIREN
     Dosage: 1 DOSAGE FORM, 1 EVERY 1 DAY (QD)
     Route: 048
  25. ALISKIREN HEMIFUMARATE [Suspect]
     Active Substance: ALISKIREN HEMIFUMARATE
     Indication: Microalbuminuria
     Dosage: 1 DOSAGE FORM, 1 EVERY 1 DAY (QD)
     Route: 048
  26. ALISKIREN HEMIFUMARATE [Suspect]
     Active Substance: ALISKIREN HEMIFUMARATE
     Indication: Hypertension
     Dosage: 150 MILLIGRAM, 1 EVERY 1 DAY (QD)
     Route: 048
  27. ASPIRIN [Suspect]
     Active Substance: ASPIRIN
     Indication: Product used for unknown indication
     Dosage: 80 MILLIGRAM, 1 EVERY 1 DAY (QD)
     Route: 048
  28. ASPIRIN [Suspect]
     Active Substance: ASPIRIN
     Dosage: 1 DOSAGE FORM 1 EVERY 1 DAY
     Route: 048
  29. AMLODIPINE BESYLATE [Suspect]
     Active Substance: AMLODIPINE BESYLATE
     Indication: Product used for unknown indication
     Dosage: 1 DOSAGE FORM, 1 EVERY ONE DAYS (QD)
     Route: 048
  30. ESOMEPRAZOLE MAGNESIUM [Suspect]
     Active Substance: ESOMEPRAZOLE MAGNESIUM
     Indication: Product used for unknown indication
     Dosage: 40 MILLIGRAM 1 EVERY 1 DAY (QD)
     Route: 048
  31. ESOMEPRAZOLE MAGNESIUM [Suspect]
     Active Substance: ESOMEPRAZOLE MAGNESIUM
     Dosage: 1 DOSAGE FORM 1 EVERY 1 DAY (QD)
     Route: 048
  32. AMLODIPINE BESYLATE [Suspect]
     Active Substance: AMLODIPINE BESYLATE
     Indication: Product used for unknown indication
     Dosage: 5 MG, 1X/DAY
     Route: 065
  33. AMLODIPINE BESYLATE [Suspect]
     Active Substance: AMLODIPINE BESYLATE
     Dosage: UNK
     Route: 065
  34. AMLODIPINE BESYLATE [Suspect]
     Active Substance: AMLODIPINE BESYLATE
     Dosage: UNK
     Route: 065
  35. ESOMEPRAZOLE [Suspect]
     Active Substance: ESOMEPRAZOLE
     Indication: Product used for unknown indication
     Dosage: 40 MILLIGRAM, 1 EVERY 1 DAY (QD)
     Route: 048
  36. ESOMEPRAZOLE [Suspect]
     Active Substance: ESOMEPRAZOLE
     Dosage: 1 DOSAGE FORM, 1 EVERY ONE 1 DAY (QD)
     Route: 048
  37. AVAPRO [Concomitant]
     Active Substance: IRBESARTAN
     Indication: Product used for unknown indication
     Dosage: 1 DOSAGE FORM, QD
     Route: 065
  38. GLUCOPHAGE [Concomitant]
     Active Substance: METFORMIN HYDROCHLORIDE
     Indication: Product used for unknown indication
     Dosage: UNK
     Route: 065
  39. GLUCOPHAGE [Concomitant]
     Active Substance: METFORMIN HYDROCHLORIDE
     Dosage: UNK
     Route: 065
  40. CYANOCOBALAMIN [Concomitant]
     Active Substance: CYANOCOBALAMIN
     Indication: Product used for unknown indication
     Dosage: 1 DOSAGE FORM
     Route: 048

REACTIONS (23)
  - Cerebrovascular accident [Recovered/Resolved with Sequelae]
  - Hemiparesis [Recovered/Resolved with Sequelae]
  - Aphasia [Recovered/Resolved with Sequelae]
  - Hemiplegia [Recovered/Resolved with Sequelae]
  - Affect lability [Recovered/Resolved with Sequelae]
  - Confusional state [Recovered/Resolved with Sequelae]
  - Dysphagia [Recovered/Resolved with Sequelae]
  - Muscle spasticity [Recovered/Resolved with Sequelae]
  - Muscular weakness [Recovered/Resolved with Sequelae]
  - Personality disorder [Recovered/Resolved with Sequelae]
  - Adjustment disorder [Recovered/Resolved with Sequelae]
  - Carotid artery thrombosis [Recovered/Resolved with Sequelae]
  - Dysarthria [Recovered/Resolved with Sequelae]
  - Eating disorder [Recovered/Resolved with Sequelae]
  - Fall [Recovered/Resolved with Sequelae]
  - Motor dysfunction [Recovered/Resolved with Sequelae]
  - Neurologic neglect syndrome [Recovered/Resolved with Sequelae]
  - Sensory loss [Recovered/Resolved with Sequelae]
  - Coordination abnormal [Recovered/Resolved with Sequelae]
  - Asthenia [Recovered/Resolved with Sequelae]
  - Anxiety [Recovered/Resolved with Sequelae]
  - Nausea [Recovered/Resolved with Sequelae]
  - Impaired work ability [Recovered/Resolved with Sequelae]

NARRATIVE: CASE EVENT DATE: 20120201
